FAERS Safety Report 5974254-4 (Version None)
Quarter: 2008Q4

REPORT INFORMATION
  Report Type: 
  Country: None (occurrence: None)
  Receive Date: 20081201
  Receipt Date: 20081124
  Transmission Date: 20090506
  Serious: Yes (Death)
  Sender: FDA-Public Use
  Company Number: ZA-ALLERGAN-0815102US

PATIENT
  Sex: Male

DRUGS (4)
  1. BOTOX [Suspect]
     Indication: MUSCLE SPASTICITY
     Dosage: 200 UNITS, SINGLE
     Route: 030
     Dates: start: 20081110, end: 20081110
  2. BACLOFEN [Concomitant]
     Indication: MUSCLE SPASTICITY
     Dosage: 25 MG, TID
  3. MIDAZOLAM HCL [Concomitant]
     Indication: SEDATION
     Dosage: 2 MG, SINGLE
     Route: 042
     Dates: start: 20081110, end: 20081110
  4. ATERAX [Concomitant]
     Indication: SEDATION
     Dosage: 25 MG, SINGLE
     Dates: start: 20081110, end: 20081110

REACTIONS (1)
  - DEATH [None]
